FAERS Safety Report 7654731-0 (Version None)
Quarter: 2011Q3

REPORT INFORMATION
  Report Type: 
  Country: None (occurrence: None)
  Receive Date: 20110804
  Receipt Date: 20110725
  Transmission Date: 20111222
  Serious: No
  Sender: FDA-Public Use
  Company Number: US-BIOGENIDEC-2010BI043098

PATIENT
  Sex: Female

DRUGS (2)
  1. TYSABRI [Suspect]
     Indication: MULTIPLE SCLEROSIS
     Route: 042
     Dates: start: 20101201, end: 20101201
  2. TYSABRI [Suspect]
     Route: 042
     Dates: start: 20110523

REACTIONS (4)
  - HYPERSENSITIVITY [None]
  - VERTIGO [None]
  - DIZZINESS [None]
  - HYPOTENSION [None]
